FAERS Safety Report 23765165 (Version 1)
Quarter: 2024Q2

REPORT INFORMATION
  Report Type: Spontaneous
  Country: US (occurrence: US)
  Receive Date: 20240420
  Receipt Date: 20240420
  Transmission Date: 20240716
  Serious: No
  Sender: FDA-Public Use
  Company Number: US-SA-SAC20240417000051

PATIENT
  Age: 54 Year
  Sex: Female
  Weight: 65.77 kg

DRUGS (10)
  1. DUPIXENT [Suspect]
     Active Substance: DUPILUMAB
     Indication: Dermatitis atopic
     Dosage: DOSE AND ROUTE: - 300 MG UNDER THE SKIN FREQUENCY: - EVERY 14 DAYS
     Route: 058
     Dates: start: 201805
  2. ASCORBIC ACID [Concomitant]
     Active Substance: ASCORBIC ACID
  3. IPRATROPIUM BROMIDE [Concomitant]
     Active Substance: IPRATROPIUM BROMIDE\IPRATROPIUM BROMIDE ANHYDROUS
  4. VUITY [Concomitant]
     Active Substance: PILOCARPINE HYDROCHLORIDE
  5. CEFIXIME [Concomitant]
     Active Substance: CEFIXIME
  6. MINOCYCLINE HYDROCHLORIDE [Concomitant]
     Active Substance: MINOCYCLINE HYDROCHLORIDE
  7. MOMETASONE FUROATE [Concomitant]
     Active Substance: MOMETASONE FUROATE
  8. MOTRIN IB [Concomitant]
     Active Substance: IBUPROFEN
  9. ALLEGRA D-12 HOUR [Concomitant]
     Active Substance: FEXOFENADINE HYDROCHLORIDE\PSEUDOEPHEDRINE HYDROCHLORIDE
  10. ESTRADIOL / NORETHINDRONE ACETATE [Concomitant]
     Active Substance: ESTRADIOL\NORETHINDRONE ACETATE

REACTIONS (2)
  - Influenza [Recovering/Resolving]
  - Diarrhoea [Unknown]

NARRATIVE: CASE EVENT DATE: 20240401
